FAERS Safety Report 9126714 (Version 1)
Quarter: 2013Q1

REPORT INFORMATION
  Report Type: Spontaneous
  Country: US (occurrence: US)
  Receive Date: 20130122
  Receipt Date: 20130122
  Transmission Date: 20140127
  Serious: Yes (Other)
  Sender: FDA-Public Use
  Company Number: US-JNJFOC-20130105842

PATIENT
  Sex: Female
  Weight: 68.95 kg

DRUGS (5)
  1. REMICADE [Suspect]
     Indication: RHEUMATOID ARTHRITIS
     Dosage: STARTED IN FEB OR MAR-2012 AND STOPPED IN AUG OR SEP-2012
     Route: 042
     Dates: start: 2012, end: 2012
  2. METHOTREXATE [Concomitant]
     Indication: RHEUMATOID ARTHRITIS
     Route: 048
     Dates: start: 2012
  3. SYNTHROID [Concomitant]
     Indication: THYROID DISORDER
     Route: 048
  4. UNKNOWN MEDICATION [Concomitant]
     Indication: MUSCLE SPASMS
     Route: 065
     Dates: end: 2012
  5. CRESTOR [Concomitant]
     Indication: BLOOD CHOLESTEROL
     Route: 048

REACTIONS (2)
  - Systemic lupus erythematosus [Not Recovered/Not Resolved]
  - Back pain [Not Recovered/Not Resolved]
